FAERS Safety Report 4372065-7 (Version None)
Quarter: 2004Q2

REPORT INFORMATION
  Report Type: 
  Country: None (occurrence: None)
  Receive Date: 20040602
  Receipt Date: 20040517
  Transmission Date: 20050107
  Serious: Yes (Other)
  Sender: FDA-Public Use
  Company Number: 2004-DE-02913GD

PATIENT
  Sex: Female

DRUGS (3)
  1. METHOTREXATE [Suspect]
     Indication: IRIDOCYCLITIS
     Dosage: 20 MG (NR, WEEKLY), NR
  2. PREDNISONE TAB [Suspect]
     Indication: IRIDOCYCLITIS
     Dosage: 20 MG (NR), PO
     Route: 048
  3. CORTICOSTEROID (CORTICOSTEROIDS) [Suspect]
     Indication: IRIDOCYCLITIS
     Dosage: NR (NR, EVERY 2 HOURS), CO

REACTIONS (7)
  - DISEASE RECURRENCE [None]
  - DRUG INEFFECTIVE [None]
  - INFLUENZA LIKE ILLNESS [None]
  - MACULAR OEDEMA [None]
  - REFUSAL OF TREATMENT BY PATIENT [None]
  - UVEITIS [None]
  - VISUAL ACUITY REDUCED [None]
